FAERS Safety Report 21943282 (Version 1)
Quarter: 2023Q1

REPORT INFORMATION
  Report Type: Spontaneous
  Country: IT (occurrence: IT)
  Receive Date: 20230202
  Receipt Date: 20230202
  Transmission Date: 20230417
  Serious: Yes (Other)
  Sender: FDA-Public Use
  Company Number: None

PATIENT
  Age: 75 Year
  Sex: Male
  Weight: 70 kg

DRUGS (8)
  1. BEVACIZUMAB [Suspect]
     Active Substance: BEVACIZUMAB
     Indication: Colon cancer
     Dosage: 350 MILLIGRAM
     Route: 040
     Dates: start: 20220408, end: 20220422
  2. IRINOTECAN [Suspect]
     Active Substance: IRINOTECAN
     Indication: Colon cancer
     Dosage: 229 MILLIGRAM
     Route: 040
     Dates: start: 20220408, end: 20220422
  3. FLUOROURACIL [Suspect]
     Active Substance: FLUOROURACIL
     Indication: Colon cancer
     Dosage: 509 MILLIGRAM
     Route: 040
     Dates: start: 20220408, end: 20220422
  4. FLUOROURACIL [Suspect]
     Active Substance: FLUOROURACIL
     Dosage: 3057 MILLIGRAM
     Route: 040
     Dates: start: 20220408, end: 20220422
  5. ZESTRIL [Concomitant]
     Active Substance: LISINOPRIL
     Dosage: UNK
  6. LEVOLEUCOVORIN [Concomitant]
     Active Substance: LEVOLEUCOVORIN
     Dosage: 254 MILLIGRAM
  7. OLANZAPINE [Concomitant]
     Active Substance: OLANZAPINE
     Dosage: UNK
  8. ANAFRANIL [Concomitant]
     Active Substance: CLOMIPRAMINE HYDROCHLORIDE
     Dosage: UNK

REACTIONS (3)
  - Dermatitis bullous [Recovered/Resolved]
  - Pruritus [Recovered/Resolved]
  - Diarrhoea [Recovered/Resolved]

NARRATIVE: CASE EVENT DATE: 20220411
